FAERS Safety Report 8681976 (Version 3)
Quarter: 2012Q4

REPORT INFORMATION
  Report Type: 
  Country: BR (occurrence: BR)
  Receive Date: 20120725
  Receipt Date: 20120905
  Transmission Date: 20130627
  Serious: Yes (Hospitalization, Other)
  Sender: FDA-Public Use
  Company Number: BR-ROCHE-1091589

PATIENT
  Sex: Female

DRUGS (14)
  1. XOLAIR [Suspect]
     Indication: ASTHMA
     Dosage: 2 times in a month
     Route: 065
     Dates: start: 20120512
  2. NEXIUM [Concomitant]
     Route: 065
     Dates: start: 1994
  3. GLIMEPIRIDE [Concomitant]
     Route: 065
     Dates: start: 1994
  4. METFORMIN [Concomitant]
     Route: 065
     Dates: start: 1994
  5. ATORVASTATIN [Concomitant]
     Route: 065
     Dates: start: 1994
  6. SIMVASTATIN [Concomitant]
     Route: 065
     Dates: start: 1994
  7. OS-CAL +D [Concomitant]
     Route: 065
  8. SUMATRIPTAN [Concomitant]
     Route: 065
  9. LEXAPRO [Concomitant]
     Route: 065
  10. FORASEQ [Concomitant]
  11. SALBUTAMOL [Concomitant]
  12. RIVOTRIL [Concomitant]
     Route: 065
  13. STILNOX [Concomitant]
  14. SPIRIVA [Concomitant]
     Route: 065

REACTIONS (4)
  - Pneumonia [Recovered/Resolved]
  - Diabetes mellitus [Unknown]
  - Malaise [Unknown]
  - Blood glucose decreased [Not Recovered/Not Resolved]
